FAERS Safety Report 4555369-4 (Version None)
Quarter: 2005Q1

REPORT INFORMATION
  Report Type: 
  Country: None (occurrence: None)
  Receive Date: 20050118
  Receipt Date: 20050118
  Transmission Date: 20050727
  Serious: Yes (Hospitalization)
  Sender: FDA-Public Use
  Company Number: None

PATIENT
  Age: 47 Year
  Sex: Female
  Weight: 75.7507 kg

DRUGS (5)
  1. CEFOTAN [Suspect]
     Indication: INFECTION
     Dosage: 1 GRAM  IV Q12H
     Route: 042
     Dates: start: 20041210, end: 20041213
  2. DIFLUCAN [Concomitant]
  3. HYDROMORPHONE [Concomitant]
  4. ANZEMET [Concomitant]
  5. PROMETHAZINE [Concomitant]

REACTIONS (1)
  - THROMBOCYTOPENIA [None]
